FAERS Safety Report 9788452 (Version 3)
Quarter: 2014Q1

REPORT INFORMATION
  Report Type: Spontaneous
  Country: GB (occurrence: GB)
  Receive Date: 20131230
  Receipt Date: 20140113
  Transmission Date: 20141002
  Serious: Yes (Other)
  Sender: FDA-Public Use
  Company Number: GB-PFIZER INC-2013368360

PATIENT
  Sex: Female

DRUGS (16)
  1. CYCLOPHOSPHAMIDE [Suspect]
     Indication: NON-HODGKIN^S LYMPHOMA
     Dosage: TOTAL OF 3 CYCLES
     Route: 042
     Dates: start: 20130610
  2. CYCLOPHOSPHAMIDE [Suspect]
     Dosage: UNK
     Dates: start: 20130701
  3. CYCLOPHOSPHAMIDE [Suspect]
     Dosage: UNK
     Dates: start: 20130722
  4. CYCLOPHOSPHAMIDE [Suspect]
     Dosage: UNK
     Dates: start: 2001
  5. DOXORUBICIN [Suspect]
     Indication: NON-HODGKIN^S LYMPHOMA
     Dosage: TOTAL OF 3 CYCLES
     Route: 042
     Dates: start: 20130610
  6. DOXORUBICIN [Suspect]
     Dosage: UNK
     Route: 042
     Dates: start: 20130701
  7. DOXORUBICIN [Suspect]
     Dosage: UNK
     Route: 042
     Dates: start: 20130722
  8. RITUXIMAB [Suspect]
     Indication: NON-HODGKIN^S LYMPHOMA
     Dosage: TOTAL OF 3 CYCLES
     Route: 042
     Dates: start: 20130610
  9. RITUXIMAB [Suspect]
     Dosage: UNK
     Route: 042
     Dates: start: 20130701
  10. RITUXIMAB [Suspect]
     Dosage: UNK
     Route: 042
     Dates: start: 20130722
  11. VINCRISTINE [Suspect]
     Indication: NON-HODGKIN^S LYMPHOMA
     Dosage: TOTAL OF 3 CYCLES
     Route: 042
     Dates: start: 20130610
  12. VINCRISTINE [Suspect]
     Dosage: UNK
     Route: 042
     Dates: start: 20130701
  13. VINCRISTINE [Suspect]
     Dosage: UNK
     Route: 042
     Dates: start: 20130722
  14. PREDNISOLONE [Suspect]
     Indication: NON-HODGKIN^S LYMPHOMA
     Dosage: TOTAL OF 3 CYCLES
     Route: 048
     Dates: start: 20130610
  15. PREDNISOLONE [Suspect]
     Dosage: UNK
     Route: 048
     Dates: start: 20130701
  16. PREDNISOLONE [Suspect]
     Dosage: UNK
     Route: 048
     Dates: start: 20130722

REACTIONS (1)
  - Progressive multifocal leukoencephalopathy [Unknown]
